FAERS Safety Report 13355841 (Version 3)
Quarter: 2017Q2

REPORT INFORMATION
  Report Type: Spontaneous
  Country: AU (occurrence: AU)
  Receive Date: 20170321
  Receipt Date: 20170419
  Transmission Date: 20170830
  Serious: Yes (Hospitalization, Other)
  Sender: FDA-Public Use
  Company Number: AU-ASTRAZENECA-2017SE28976

PATIENT
  Age: 1042 Month
  Sex: Female

DRUGS (14)
  1. DIAFORMIN XR 1000 [Suspect]
     Active Substance: METFORMIN HYDROCHLORIDE
     Indication: TYPE 2 DIABETES MELLITUS
     Dosage: NON-ASTRAZENECA PRODUCT, 1 G TWICE DAILY
     Route: 048
  2. CRESTOR [Concomitant]
     Active Substance: ROSUVASTATIN CALCIUM
     Indication: BLOOD CHOLESTEROL ABNORMAL
     Route: 048
  3. SOMAC [Concomitant]
     Active Substance: PANTOPRAZOLE SODIUM
     Indication: HIATUS HERNIA
     Dosage: ONE TABLET, SWALLOWED WHOLE EACH MORNING
     Route: 048
  4. GLICLAZIDE [Concomitant]
     Active Substance: GLICLAZIDE
     Indication: TYPE 2 DIABETES MELLITUS
     Dosage: ONE TABLET, SWALLOWED WHOLE WITH FOOD, EACH MORNING
     Route: 048
  5. FEXOFENADINE [Concomitant]
     Active Substance: FEXOFENADINE\FEXOFENADINE HYDROCHLORIDE
  6. LANTUS [Concomitant]
     Active Substance: INSULIN GLARGINE
     Dosage: 16 UNITS AT LUNCH TIME
  7. LASIX [Suspect]
     Active Substance: FUROSEMIDE
     Indication: OEDEMA
     Dosage: 40 MG TMPM
     Route: 048
     Dates: end: 201701
  8. FORXIGA [Suspect]
     Active Substance: DAPAGLIFLOZIN
     Indication: TYPE 2 DIABETES MELLITUS
     Route: 048
     Dates: start: 20161214, end: 20170215
  9. AVAPRO [Suspect]
     Active Substance: IRBESARTAN
     Indication: BLOOD PRESSURE ABNORMAL
     Route: 048
  10. LASIX [Suspect]
     Active Substance: FUROSEMIDE
     Indication: OEDEMA
     Dosage: 20 MG FUROSEMIDE
     Route: 042
     Dates: start: 20170116
  11. BISOPROLOL [Concomitant]
     Active Substance: BISOPROLOL
     Indication: TACHYCARDIA
     Route: 048
  12. COLCHICINE. [Concomitant]
     Active Substance: COLCHICINE
  13. LASIX [Suspect]
     Active Substance: FUROSEMIDE
     Indication: OEDEMA
     Dosage: FUROSEMIDE, HALF TABLET EACH MORNING
     Route: 048
  14. PANAMAX [Concomitant]
     Active Substance: ACETAMINOPHEN

REACTIONS (8)
  - Pericardial effusion [Unknown]
  - Fall [Unknown]
  - Face injury [Unknown]
  - Cardiac failure [Recovering/Resolving]
  - Acute kidney injury [Recovering/Resolving]
  - Pericarditis [Unknown]
  - Blood creatinine increased [Recovering/Resolving]
  - Contusion [Unknown]

NARRATIVE: CASE EVENT DATE: 201701
